FAERS Safety Report 6753401-0 (Version None)
Quarter: 2010Q2

REPORT INFORMATION
  Report Type: 
  Country: None (occurrence: None)
  Receive Date: 20100520
  Receipt Date: 20091109
  Transmission Date: 20101027
  Serious: Yes (Other)
  Sender: FDA-Public Use
  Company Number: 2009296309

PATIENT
  Age: 69 Year
  Sex: Female
  Weight: 73.9 kg

DRUGS (4)
  1. PROVERA [Suspect]
     Indication: HORMONE REPLACEMENT THERAPY
     Dosage: 2.5-10 MG, ORAL
     Route: 048
     Dates: start: 20000301, end: 20010201
  2. MEDROXYPROGESTERONE [Suspect]
     Indication: HORMONE REPLACEMENT THERAPY
     Dates: start: 20000301, end: 20010201
  3. PREMPRO [Suspect]
     Indication: HORMONE REPLACEMENT THERAPY
     Dates: start: 20010201, end: 20021101
  4. PREMARIN [Suspect]
     Indication: HORMONE REPLACEMENT THERAPY
     Dates: start: 20010201, end: 20021101

REACTIONS (2)
  - MYOCARDIAL INFARCTION [None]
  - OVARIAN CANCER [None]
